FAERS Safety Report 4363910-X (Version None)
Quarter: 2004Q2

REPORT INFORMATION
  Report Type: 
  Country: None (occurrence: None)
  Receive Date: 20040525
  Receipt Date: 20040518
  Transmission Date: 20050107
  Serious: Yes (Hospitalization)
  Sender: FDA-Public Use
  Company Number: 200413862US

PATIENT
  Age: 77 Year
  Sex: Female
  Weight: 63.63 kg

DRUGS (12)
  1. TAXOTERE [Suspect]
     Indication: NON-SMALL CELL LUNG CANCER
     Route: 042
     Dates: start: 20040402, end: 20040423
  2. IRESSA [Suspect]
     Indication: NON-SMALL CELL LUNG CANCER
     Route: 048
     Dates: start: 20040402, end: 20040517
  3. SYNTHROID [Concomitant]
     Dosage: DOSE: UNK
  4. ZOCOR [Concomitant]
     Dosage: DOSE: UNK
  5. LOMOTIL [Concomitant]
     Dosage: DOSE: UNK
  6. FOLIC ACID [Concomitant]
     Dosage: DOSE: UNK
  7. VITAMIN B-12 [Concomitant]
     Dosage: DOSE: UNK
  8. CALCIUM [Concomitant]
     Dosage: DOSE: UNK
  9. MULTI-VITAMINS [Concomitant]
     Dosage: DOSE: UNK
  10. RITALIN [Concomitant]
     Dosage: DOSE: UNK
  11. MEGACE [Concomitant]
     Dosage: DOSE: UNK
  12. IMODIUM [Concomitant]
     Dosage: DOSE: UNK

REACTIONS (3)
  - DIARRHOEA [None]
  - HYPOKALAEMIA [None]
  - HYPOMAGNESAEMIA [None]
